FAERS Safety Report 10467397 (Version 3)
Quarter: 2015Q1

REPORT INFORMATION
  Report Type: Spontaneous
  Country: US (occurrence: US)
  Receive Date: 20140922
  Receipt Date: 20150331
  Transmission Date: 20150720
  Serious: Yes (Death, Hospitalization, Other)
  Sender: FDA-Public Use
  Company Number: US-009507513-1409USA009871

PATIENT
  Sex: Female
  Weight: 101.13 kg

DRUGS (1)
  1. JANUVIA [Suspect]
     Active Substance: SITAGLIPTIN PHOSPHATE
     Indication: TYPE 2 DIABETES MELLITUS
     Dosage: 50 MG, QD
     Route: 048
     Dates: start: 20070802, end: 20120219

REACTIONS (28)
  - Bundle branch block left [Unknown]
  - Hepatic enzyme increased [Unknown]
  - Pulmonary granuloma [Unknown]
  - Renal cyst [Unknown]
  - Gallbladder disorder [Unknown]
  - Irritable bowel syndrome [Unknown]
  - Atelectasis [Unknown]
  - Crohn^s disease [Unknown]
  - Oesophageal stenosis [Unknown]
  - Mitral valve calcification [Unknown]
  - Pneumobilia [Unknown]
  - Cholelithiasis [Unknown]
  - Biliary dilatation [Unknown]
  - Biliary anastomosis [Unknown]
  - Kidney fibrosis [Unknown]
  - Aortic arteriosclerosis [Unknown]
  - Pancreatic carcinoma [Fatal]
  - Jaundice cholestatic [Unknown]
  - Cholecystectomy [Unknown]
  - Choledochoenterostomy [Unknown]
  - Seizure [Unknown]
  - Dementia Alzheimer^s type [Unknown]
  - Bladder repair [Unknown]
  - Anaemia [Unknown]
  - Hysterectomy [Unknown]
  - Bile duct stenosis [Unknown]
  - Gastroenteritis [Unknown]
  - Thyroid disorder [Unknown]

NARRATIVE: CASE EVENT DATE: 20101021
